FAERS Safety Report 8439751-0 (Version None)
Quarter: 2012Q2

REPORT INFORMATION
  Report Type: 
  Country: None (occurrence: None)
  Receive Date: 20120615
  Receipt Date: 20120607
  Transmission Date: 20120825
  Serious: Yes (Other)
  Sender: FDA-Public Use
  Company Number: CH-ABBOTT-12P-151-0943745-00

PATIENT
  Sex: Female

DRUGS (5)
  1. MOTILIUM [Concomitant]
     Indication: PRODUCT USED FOR UNKNOWN INDICATION
  2. ANTIPHLOGISTICS [Concomitant]
     Indication: PRODUCT USED FOR UNKNOWN INDICATION
  3. ST. JOHN'S WART BASED PHYTOTHERAPY [Concomitant]
     Indication: PRODUCT USED FOR UNKNOWN INDICATION
  4. HUMIRA [Suspect]
     Indication: ANKYLOSING SPONDYLITIS
     Dates: start: 20111101
  5. IPP [Concomitant]
     Indication: PRODUCT USED FOR UNKNOWN INDICATION

REACTIONS (8)
  - YELLOW SKIN [None]
  - HYPERBILIRUBINAEMIA [None]
  - ABDOMINAL PAIN UPPER [None]
  - PROTEIN TOTAL DECREASED [None]
  - DRUG-INDUCED LIVER INJURY [None]
  - FATIGUE [None]
  - TRANSAMINASES INCREASED [None]
  - AUTOIMMUNE DISORDER [None]
